FAERS Safety Report 9318905 (Version 2)
Quarter: 2013Q2

REPORT INFORMATION
  Report Type: Spontaneous
  Country: JP (occurrence: JP)
  Receive Date: 20130530
  Receipt Date: 20130605
  Transmission Date: 20140414
  Serious: Yes (Other)
  Sender: FDA-Public Use
  Company Number: PHHY2013JP053513

PATIENT
  Age: 60 Year
  Sex: Female

DRUGS (1)
  1. VOLTAREN [Suspect]
     Indication: MONONEUROPATHY MULTIPLEX

REACTIONS (5)
  - Gastric ulcer [Unknown]
  - Large intestinal ulcer [Unknown]
  - Small intestine ulcer [Unknown]
  - Melaena [Unknown]
  - Lower gastrointestinal haemorrhage [Unknown]
